FAERS Safety Report 25733635 (Version 1)
Quarter: 2025Q3

REPORT INFORMATION
  Report Type: Spontaneous
  Country: CN (occurrence: CN)
  Receive Date: 20250828
  Receipt Date: 20250828
  Transmission Date: 20251020
  Serious: Yes (Hospitalization, Other)
  Sender: ROCHE
  Company Number: CN-ROCHE-10000371199

PATIENT
  Age: 59 Year
  Sex: Female

DRUGS (4)
  1. PERJETA [Suspect]
     Active Substance: PERTUZUMAB
     Indication: Breast cancer
     Route: 042
     Dates: start: 20250801, end: 20250801
  2. TRASTUZUMAB [Suspect]
     Active Substance: TRASTUZUMAB
     Indication: Breast cancer
     Route: 042
     Dates: start: 20250801, end: 20250801
  3. CARBOPLATIN [Suspect]
     Active Substance: CARBOPLATIN
     Indication: Breast cancer
     Route: 042
     Dates: start: 20250802, end: 20250802
  4. DOCETAXEL [Suspect]
     Active Substance: DOCETAXEL
     Indication: Breast cancer
     Route: 042
     Dates: start: 20250802, end: 20250802

REACTIONS (3)
  - White blood cell count decreased [Recovering/Resolving]
  - Neutrophil count decreased [Recovering/Resolving]
  - Myelosuppression [Unknown]

NARRATIVE: CASE EVENT DATE: 20250809
